FAERS Safety Report 9904503 (Version 1)
Quarter: 2014Q1

REPORT INFORMATION
  Report Type: Spontaneous
  Country: US (occurrence: US)
  Receive Date: 20140218
  Receipt Date: 20140218
  Transmission Date: 20141002
  Serious: Yes (Other)
  Sender: FDA-Public Use
  Company Number: US-JNJFOC-20140206879

PATIENT
  Age: 65 Year
  Sex: Male

DRUGS (3)
  1. STELARA [Suspect]
     Indication: PSORIASIS
     Route: 058
  2. ASPIRIN [Concomitant]
     Route: 065
  3. ALBUTEROL [Concomitant]
     Indication: ASTHMA
     Route: 065

REACTIONS (1)
  - Atrial fibrillation [Recovered/Resolved]
